FAERS Safety Report 6166733-4 (Version None)
Quarter: 2009Q2

REPORT INFORMATION
  Report Type: 
  Country: None (occurrence: None)
  Receive Date: 20090424
  Receipt Date: 20090413
  Transmission Date: 20091009
  Serious: Yes (Other)
  Sender: FDA-Public Use
  Company Number: GB-PFIZER INC-2009196725

PATIENT

DRUGS (3)
  1. CISPLATIN [Suspect]
     Indication: GASTRIC CANCER
     Dosage: UNK
     Dates: start: 20090301, end: 20090301
  2. EPIRUBICIN HCL [Suspect]
     Indication: GASTRIC CANCER
     Dosage: UNK
     Dates: start: 20090301, end: 20090301
  3. XELODA [Suspect]
     Indication: GASTRIC CANCER
     Dosage: UNK
     Dates: start: 20090301, end: 20090301

REACTIONS (1)
  - CHEST PAIN [None]
